FAERS Safety Report 4604438-9 (Version None)
Quarter: 2005Q2

REPORT INFORMATION
  Report Type: 
  Country: None (occurrence: None)
  Receive Date: 20050217
  Receipt Date: 20041119
  Transmission Date: 20051028
  Serious: No
  Sender: FDA-Public Use
  Company Number: S04-USA-07470-01

PATIENT
  Age: 77 Year
  Sex: Female

DRUGS (6)
  1. NAMENDA [Suspect]
     Indication: DEMENTIA
     Dosage: 15 MG QD PO
     Route: 048
     Dates: start: 20041107, end: 20041113
  2. NAMENDA [Suspect]
     Indication: DEMENTIA
     Dosage: 10 MG BID PO
     Route: 048
     Dates: start: 20041113
  3. NAMENDA [Suspect]
     Indication: DEMENTIA
     Dosage: 5 MG QD PO
     Route: 048
     Dates: start: 20041024, end: 20041030
  4. NAMENDA [Suspect]
     Indication: DEMENTIA
     Dosage: 5 MG BID PO
     Route: 048
     Dates: start: 20041031, end: 20041106
  5. ARICEPT [Concomitant]
  6. FOSAMAX [Concomitant]

REACTIONS (1)
  - RASH [None]
